FAERS Safety Report 4816178-1 (Version None)
Quarter: 2005Q4

REPORT INFORMATION
  Report Type: 
  Country: None (occurrence: None)
  Receive Date: 20051026
  Receipt Date: 20051007
  Transmission Date: 20060501
  Serious: No
  Sender: FDA-Public Use
  Company Number: GBS051018604

PATIENT
  Age: 34 Year
  Sex: Female

DRUGS (3)
  1. ZYPREXA [Suspect]
     Indication: SCHIZOPHRENIA
     Dosage: 20 MG
  2. ZOPICLONE [Concomitant]
  3. VALPROATE SODIUM [Concomitant]

REACTIONS (3)
  - MENORRHAGIA [None]
  - MENSTRUATION IRREGULAR [None]
  - THINKING ABNORMAL [None]
